FAERS Safety Report 12255263 (Version 1)
Quarter: 2016Q2

REPORT INFORMATION
  Report Type: Spontaneous
  Country: US (occurrence: US)
  Receive Date: 20160412
  Receipt Date: 20160412
  Transmission Date: 20160815
  Serious: No
  Sender: FDA-Public Use
  Company Number: US-AUROBINDO-AUR-APL-2015-02090

PATIENT

DRUGS (1)
  1. LISINOPRIL TABLETS USP 5 MG [Suspect]
     Active Substance: LISINOPRIL
     Indication: BLOOD PRESSURE MEASUREMENT
     Dosage: 5 MG, UNK
     Route: 065
     Dates: start: 201309

REACTIONS (2)
  - Product quality issue [Unknown]
  - Drug ineffective [Unknown]
